FAERS Safety Report 24270876 (Version 1)
Quarter: 2024Q3

REPORT INFORMATION
  Report Type: Spontaneous
  Country: JP (occurrence: JP)
  Receive Date: 20240831
  Receipt Date: 20240831
  Transmission Date: 20241017
  Serious: Yes (Death, Life-Threatening, Hospitalization, Other)
  Sender: ACCORD
  Company Number: JP-MLMSERVICE-2023102446134001

PATIENT
  Age: 69 Year
  Sex: Male
  Weight: 43 kg

DRUGS (3)
  1. MYCOPHENOLATE MOFETIL [Suspect]
     Active Substance: MYCOPHENOLATE MOFETIL
     Indication: Immunosuppression
  2. TACROLIMUS [Suspect]
     Active Substance: TACROLIMUS
     Indication: Immunosuppression
     Dosage: FIRST 2WEEKS, 5-15NG/ML
     Route: 048
  3. TACROLIMUS [Suspect]
     Active Substance: TACROLIMUS
     Indication: Immunosuppression
     Dosage: AFTER 2WEEKS, 1-5NG/ML
     Route: 048

REACTIONS (2)
  - Epstein-Barr virus associated lymphoma [Fatal]
  - Condition aggravated [Fatal]
